FAERS Safety Report 8811938 (Version 2)
Quarter: 2012Q4

REPORT INFORMATION
  Report Type: 
  Country: US (occurrence: US)
  Receive Date: 20120927
  Receipt Date: 20121210
  Transmission Date: 20130627
  Serious: Yes (Hospitalization)
  Sender: FDA-Public Use
  Company Number: US-GILEAD-2012-0061709

PATIENT
  Age: 77 None
  Sex: Male

DRUGS (1)
  1. LETAIRIS [Suspect]
     Indication: PRODUCT USED FOR UNKNOWN INDICATION
     Dosage: 5 mg, UNK
     Route: 048
     Dates: start: 20120903, end: 20120905

REACTIONS (5)
  - Hypotension [Unknown]
  - Dyspnoea [Unknown]
  - Dyspnoea [Unknown]
  - Oedema [Unknown]
  - Feeling abnormal [Unknown]
